FAERS Safety Report 7703970-9 (Version None)
Quarter: 2011Q3

REPORT INFORMATION
  Report Type: 
  Country: None (occurrence: None)
  Receive Date: 20110823
  Receipt Date: 20110809
  Transmission Date: 20111222
  Serious: Yes (Death)
  Sender: FDA-Public Use
  Company Number: DE-ROCHE-797947

PATIENT
  Sex: Female

DRUGS (2)
  1. AVASTIN [Suspect]
     Indication: BREAST CANCER
     Dosage: FIRST LINE
     Route: 065
  2. TAXANE NOS [Concomitant]
     Indication: BREAST CANCER
     Dosage: ADJUVANT AND FIRST LINE

REACTIONS (1)
  - PANCREATITIS HAEMORRHAGIC [None]
